FAERS Safety Report 9971898 (Version 1)
Quarter: 2014Q1

REPORT INFORMATION
  Report Type: Report from Study
  Country: US (occurrence: US)
  Receive Date: 20140306
  Receipt Date: 20140306
  Transmission Date: 20141002
  Serious: No
  Sender: FDA-Public Use
  Company Number: US-ABBVIE-13P-163-1150070-00

PATIENT
  Age: 34 Year
  Sex: Female

DRUGS (4)
  1. HUMIRA [Suspect]
     Indication: COLITIS ULCERATIVE
     Dates: start: 20130621, end: 201309
  2. OXYCODONE [Concomitant]
     Indication: PAIN
     Dosage: 5 TO 25 MG BY MOUTH
     Route: 048
  3. FENTANYL [Concomitant]
     Indication: PAIN
     Dosage: PATCHES; 1 EVERY 72 HOURS
     Route: 062
  4. FENTANYL [Concomitant]
     Dosage: PATCHES;ONE EVERY 72 HOURS
     Route: 062

REACTIONS (15)
  - Fatigue [Not Recovered/Not Resolved]
  - Skin lesion [Not Recovered/Not Resolved]
  - Sputum discoloured [Not Recovered/Not Resolved]
  - Arthralgia [Not Recovered/Not Resolved]
  - Seasonal allergy [Not Recovered/Not Resolved]
  - Cough [Not Recovered/Not Resolved]
  - Pruritus [Not Recovered/Not Resolved]
  - Paraesthesia [Not Recovered/Not Resolved]
  - Rectal haemorrhage [Not Recovered/Not Resolved]
  - Bronchitis [Not Recovered/Not Resolved]
  - Drug ineffective [Not Recovered/Not Resolved]
  - Nausea [Not Recovered/Not Resolved]
  - Headache [Not Recovered/Not Resolved]
  - Urticaria [Not Recovered/Not Resolved]
  - Asthma [Not Recovered/Not Resolved]
